FAERS Safety Report 4712493-0 (Version None)
Quarter: 2005Q2

REPORT INFORMATION
  Report Type: 
  Country: None (occurrence: None)
  Receive Date: 20050629
  Receipt Date: 20050308
  Transmission Date: 20051028
  Serious: No
  Sender: FDA-Public Use
  Company Number: 05P-163-0293074-00

PATIENT
  Age: 64 Year
  Sex: Female
  Weight: 78.4723 kg

DRUGS (3)
  1. HUMIRA [Suspect]
     Indication: RHEUMATOID ARTHRITIS
     Dosage: 40 MG, 1 IN 2 WK, SUBCUTANEOUS
     Route: 058
     Dates: start: 20040301
  2. METHOTREXATE SODIUM [Concomitant]
  3. PREDNISONE TAB [Concomitant]

REACTIONS (2)
  - PALMAR ERYTHEMA [None]
  - RASH MACULO-PAPULAR [None]
